FAERS Safety Report 8044043-8 (Version None)
Quarter: 2012Q1

REPORT INFORMATION
  Report Type: 
  Country: None (occurrence: None)
  Receive Date: 20120113
  Receipt Date: 20111230
  Transmission Date: 20120608
  Serious: Yes (Hospitalization, Other)
  Sender: FDA-Public Use
  Company Number: AU-CELGENEUS-008-21880-11081932

PATIENT
  Sex: Male

DRUGS (15)
  1. LERCANIDIPINE [Concomitant]
  2. PERINDOPRIL ERBUMINE [Concomitant]
     Indication: HYPERTENSION
     Route: 065
  3. PERINDOPRIL ERBUMINE [Concomitant]
  4. ZOMETA [Concomitant]
     Indication: MULTIPLE MYELOMA
     Route: 065
     Dates: start: 20060501
  5. ZOMETA [Concomitant]
     Route: 065
     Dates: start: 20110601
  6. FELDENE D [Concomitant]
     Indication: BACK PAIN
     Route: 065
  7. MICARDIS HCT [Concomitant]
     Indication: HYPERTENSION
     Route: 048
  8. BIZON [Concomitant]
  9. WARFARIN SODIUM [Concomitant]
     Indication: ATRIAL FIBRILLATION
     Route: 048
  10. LERCANIDIPINE [Concomitant]
     Indication: HYPERTENSION
     Route: 065
  11. REVLIMID [Suspect]
     Route: 048
     Dates: start: 20110601
  12. BIZON [Concomitant]
     Indication: HYPERTENSION
     Dosage: 20 MILLIGRAM
     Route: 048
  13. NEXIUM [Concomitant]
     Dosage: 40 MILLIGRAM
     Route: 065
  14. MICARDIS HCT [Concomitant]
  15. REVLIMID [Suspect]
     Indication: MULTIPLE MYELOMA
     Dosage: 5 MILLIGRAM
     Route: 048
     Dates: start: 20080901, end: 20110101

REACTIONS (2)
  - MALIGNANT MELANOMA [None]
  - PANCYTOPENIA [None]
